FAERS Safety Report 4446222-5 (Version None)
Quarter: 2004Q3

REPORT INFORMATION
  Report Type: 
  Country: None (occurrence: None)
  Receive Date: 20040907
  Receipt Date: 20040824
  Transmission Date: 20050211
  Serious: Yes (Death, Hospitalization)
  Sender: FDA-Public Use
  Company Number: CERZ-10631

PATIENT
  Age: 70 Year
  Sex: Female

DRUGS (1)
  1. CEREZYME [Suspect]
     Indication: GAUCHER'S DISEASE
     Dosage: 5000 UNITS Q4WKS IV
     Route: 042
     Dates: start: 19971201, end: 20040707

REACTIONS (5)
  - ANAEMIA [None]
  - CHRONIC MYELOID LEUKAEMIA [None]
  - CONDITION AGGRAVATED [None]
  - FAECAL OCCULT BLOOD POSITIVE [None]
  - GASTROINTESTINAL OBSTRUCTION [None]
